FAERS Safety Report 15903410 (Version 1)
Quarter: 2019Q1

REPORT INFORMATION
  Report Type: Report from Study
  Country: GB (occurrence: GB)
  Receive Date: 20190202
  Receipt Date: 20190202
  Transmission Date: 20190417
  Serious: Yes (Other)
  Sender: FDA-Public Use
  Company Number: PHHY2019GB019706

PATIENT
  Age: 47 Year
  Sex: Female
  Weight: 67 kg

DRUGS (1)
  1. HYRIMOZ [Suspect]
     Active Substance: ADALIMUMAB-ADAZ
     Indication: COLITIS ULCERATIVE
     Dosage: 40 MG, FORTNIGHTLY
     Route: 058
     Dates: start: 20190123

REACTIONS (2)
  - Injection site hypersensitivity [Unknown]
  - Injection site pain [Unknown]

NARRATIVE: CASE EVENT DATE: 20190123
